FAERS Safety Report 25141865 (Version 1)
Quarter: 2025Q1

REPORT INFORMATION
  Report Type: Spontaneous
  Country: PL (occurrence: PL)
  Receive Date: 20250331
  Receipt Date: 20250331
  Transmission Date: 20250409
  Serious: Yes (Other)
  Sender: BAYER HEALTHCARE PHARMACEUTICALS INC.
  Company Number: PL-BAYER-2025A042721

PATIENT
  Age: 63 Year
  Sex: Male

DRUGS (6)
  1. NUBEQA [Suspect]
     Active Substance: DAROLUTAMIDE
     Indication: Hormone-dependent prostate cancer
     Dosage: 1200 MG
     Route: 048
     Dates: start: 20240711, end: 20240718
  2. ROSUVASTATIN [Suspect]
     Active Substance: ROSUVASTATIN
  3. DOCETAXEL [Suspect]
     Active Substance: DOCETAXEL
  4. Dironorm [Concomitant]
  5. TORSEMIDE [Concomitant]
     Active Substance: TORSEMIDE
  6. INSULIN NOS [Concomitant]
     Active Substance: INSULIN NOS

REACTIONS (6)
  - Hepatic enzyme increased [Recovered/Resolved]
  - Diabetes mellitus inadequate control [None]
  - Hepatotoxicity [None]
  - Aspartate aminotransferase increased [Recovered/Resolved]
  - Alanine aminotransferase increased [Recovering/Resolving]
  - Drug interaction [None]

NARRATIVE: CASE EVENT DATE: 20240718
